FAERS Safety Report 10189239 (Version 2)
Quarter: 2020Q3

REPORT INFORMATION
  Report Type: Spontaneous
  Country: PT (occurrence: PT)
  Receive Date: 20140522
  Receipt Date: 20200817
  Transmission Date: 20201102
  Serious: Yes (Hospitalization, Other)
  Sender: FDA-Public Use
  Company Number: PHHY2014PT058626

PATIENT
  Age: 8 Year
  Sex: Female

DRUGS (4)
  1. RISPERIDONE. [Concomitant]
     Active Substance: RISPERIDONE
     Indication: ATTENTION DEFICIT HYPERACTIVITY DISORDER
  2. RISPERIDONE. [Concomitant]
     Active Substance: RISPERIDONE
     Indication: BEHAVIOUR DISORDER
     Dosage: 1 MG, DAILY
     Route: 048
  3. SERTRALINE [Suspect]
     Active Substance: SERTRALINE HYDROCHLORIDE
     Indication: ABNORMAL BEHAVIOUR
     Dosage: 25 MG, DAILY
     Route: 065
  4. SERTRALINE [Suspect]
     Active Substance: SERTRALINE HYDROCHLORIDE
     Indication: INSOMNIA
     Dosage: 1500 MG, 30 PILLS (50 MG/KG)
     Route: 065

REACTIONS (26)
  - Pyrexia [Recovered/Resolved]
  - Insomnia [Recovered/Resolved]
  - Hyperhidrosis [Recovered/Resolved]
  - Tremor [Recovered/Resolved]
  - Abnormal behaviour [Recovered/Resolved]
  - Hepatocellular injury [Recovered/Resolved]
  - Tachypnoea [Recovered/Resolved]
  - Myoclonus [Recovered/Resolved]
  - Intentional overdose [Recovered/Resolved]
  - Flushing [Recovered/Resolved]
  - Blood creatine phosphokinase increased [Recovered/Resolved]
  - Hallucination, visual [Recovered/Resolved]
  - Hypertension [Recovered/Resolved]
  - Athetosis [Recovered/Resolved]
  - Serotonin syndrome [Recovered/Resolved]
  - Confusional state [Recovered/Resolved]
  - Heart rate increased [Recovered/Resolved]
  - Hyperreflexia [Recovered/Resolved]
  - Dystonia [Recovered/Resolved]
  - Feeling abnormal [Recovered/Resolved]
  - Product use in unapproved indication [Unknown]
  - Rhabdomyolysis [Recovered/Resolved]
  - Salivary hypersecretion [Recovered/Resolved]
  - Toxicity to various agents [Recovered/Resolved]
  - Agitation [Recovered/Resolved]
  - Muscle rigidity [Recovered/Resolved]
